FAERS Safety Report 7288540-1 (Version None)
Quarter: 2011Q1

REPORT INFORMATION
  Report Type: 
  Country: None (occurrence: None)
  Receive Date: 20110211
  Receipt Date: 20110201
  Transmission Date: 20110831
  Serious: Yes (Other)
  Sender: FDA-Public Use
  Company Number: IT-JNJFOC-20110201562

PATIENT
  Age: 18 Year
  Sex: Female

DRUGS (3)
  1. INFLIXIMAB, RECOMBINANT [Suspect]
     Indication: CROHN'S DISEASE
     Route: 042
  2. INFLIXIMAB, RECOMBINANT [Suspect]
     Route: 042
  3. AZATHIOPRINE [Concomitant]
     Indication: CROHN'S DISEASE

REACTIONS (3)
  - ANAL ABSCESS [None]
  - ANAL FISTULA [None]
  - THERAPEUTIC RESPONSE DECREASED [None]
